FAERS Safety Report 23263529 (Version 1)
Quarter: 2023Q4

REPORT INFORMATION
  Report Type: Spontaneous
  Country: US (occurrence: US)
  Receive Date: 20231205
  Receipt Date: 20231205
  Transmission Date: 20240110
  Serious: No
  Sender: FDA-Public Use
  Company Number: US-INSUD PHARMA-2311US08408

PATIENT

DRUGS (1)
  1. SLYND [Suspect]
     Active Substance: DROSPIRENONE
     Indication: Menopausal symptoms
     Dosage: UNKNOWN
     Route: 048

REACTIONS (2)
  - Intermenstrual bleeding [Unknown]
  - Product use in unapproved indication [Unknown]
